FAERS Safety Report 17020094 (Version 2)
Quarter: 2020Q1

REPORT INFORMATION
  Report Type: Spontaneous
  Country: US (occurrence: US)
  Receive Date: 20191112
  Receipt Date: 20200325
  Transmission Date: 20200409
  Serious: Yes (Other)
  Sender: FDA-Public Use
  Company Number: US-ASTRAZENECA-2019SF58921

PATIENT
  Age: 62 Year
  Sex: Female

DRUGS (46)
  1. NEXIUM [Suspect]
     Active Substance: ESOMEPRAZOLE MAGNESIUM
     Indication: GASTROOESOPHAGEAL REFLUX DISEASE
     Dosage: 40.0MG UNKNOWN
     Route: 048
     Dates: start: 2000, end: 2017
  2. LEVAGNIN [Concomitant]
     Indication: INFECTION
  3. HYDROMORPHONE [Concomitant]
     Active Substance: HYDROMORPHONE
  4. AMOXICILLIN. [Concomitant]
     Active Substance: AMOXICILLIN
     Indication: INFECTION
  5. TRIAMTERENE. [Concomitant]
     Active Substance: TRIAMTERENE
  6. NYSTATIN. [Concomitant]
     Active Substance: NYSTATIN
  7. CEFUROXIME. [Concomitant]
     Active Substance: CEFUROXIME
  8. NASACORT [Concomitant]
     Active Substance: TRIAMCINOLONE ACETONIDE
  9. LORATADINE. [Concomitant]
     Active Substance: LORATADINE
  10. MOXEZA [Concomitant]
     Active Substance: MOXIFLOXACIN HYDROCHLORIDE
  11. OSELTAMIVIR [Concomitant]
     Active Substance: OSELTAMIVIR
  12. AMITIZA [Concomitant]
     Active Substance: LUBIPROSTONE
  13. BUDESONIDE. [Concomitant]
     Active Substance: BUDESONIDE
  14. HYDROCODON-ACETAMINOPHEN [Concomitant]
     Active Substance: ACETAMINOPHEN\HYDROCODONE
  15. CITALOPRAM [Concomitant]
     Active Substance: CITALOPRAM HYDROBROMIDE
  16. OXYCODONE-ACETAMINOPHEN [Concomitant]
     Active Substance: ACETAMINOPHEN\OXYCODONE HYDROCHLORIDE
  17. CEFDINIR. [Concomitant]
     Active Substance: CEFDINIR
  18. VITAMIN D [Concomitant]
     Active Substance: VITAMIN D NOS
  19. CELECOXIL [Concomitant]
     Indication: DEPRESSION
     Dates: start: 20170813
  20. TIZANIDINE. [Concomitant]
     Active Substance: TIZANIDINE
  21. LEVOFLOXACIN. [Concomitant]
     Active Substance: LEVOFLOXACIN
  22. DICLOFENAC [Concomitant]
     Active Substance: DICLOFENAC
  23. AMOX TR-K CLV [Concomitant]
     Active Substance: AMOXICILLIN\CLAVULANATE POTASSIUM
  24. PREDNISONE. [Concomitant]
     Active Substance: PREDNISONE
  25. MORPHINE [Concomitant]
     Active Substance: MORPHINE
  26. ZANTAC [Concomitant]
     Active Substance: RANITIDINE HYDROCHLORIDE
  27. PRAVASTATIN. [Concomitant]
     Active Substance: PRAVASTATIN
  28. LEVOTHYROXINE. [Concomitant]
     Active Substance: LEVOTHYROXINE
  29. FLUCONAZOLE. [Concomitant]
     Active Substance: FLUCONAZOLE
  30. DUREZOL [Concomitant]
     Active Substance: DIFLUPREDNATE
  31. MUPIROCIN. [Concomitant]
     Active Substance: MUPIROCIN
  32. ALBUTEROL. [Concomitant]
     Active Substance: ALBUTEROL
  33. PANTOPRAZOLE [Suspect]
     Active Substance: PANTOPRAZOLE
     Indication: GASTROOESOPHAGEAL REFLUX DISEASE
     Dosage: 40.0MG UNKNOWN
     Route: 065
     Dates: start: 2018
  34. VALACYCLOVIR [Concomitant]
     Active Substance: VALACYCLOVIR HYDROCHLORIDE
  35. KLOR-CON [Concomitant]
     Active Substance: POTASSIUM CHLORIDE
  36. IBUPROFEN. [Concomitant]
     Active Substance: IBUPROFEN
  37. MAXZIDE [Concomitant]
     Active Substance: HYDROCHLOROTHIAZIDE\TRIAMTERENE
  38. TRAMADOL. [Concomitant]
     Active Substance: TRAMADOL
     Indication: PAIN
     Dates: start: 20180101, end: 20180318
  39. ETODOLAC. [Concomitant]
     Active Substance: ETODOLAC
  40. PROVENTIL [Concomitant]
     Active Substance: ALBUTEROL
  41. BENZONATATE. [Concomitant]
     Active Substance: BENZONATATE
  42. POTASSIUM [Concomitant]
     Active Substance: POTASSIUM
  43. FOLIC ACID. [Concomitant]
     Active Substance: FOLIC ACID
  44. ONDANSETRON [Concomitant]
     Active Substance: ONDANSETRON
  45. FERROUS SULFATE. [Concomitant]
     Active Substance: FERROUS SULFATE
  46. SYMBICORT [Concomitant]
     Active Substance: BUDESONIDE\FORMOTEROL FUMARATE DIHYDRATE

REACTIONS (2)
  - Chronic kidney disease [Not Recovered/Not Resolved]
  - Nephrogenic anaemia [Unknown]

NARRATIVE: CASE EVENT DATE: 2017
